FAERS Safety Report 14909791 (Version 1)
Quarter: 2018Q2

REPORT INFORMATION
  Report Type: Spontaneous
  Country: CN (occurrence: CN)
  Receive Date: 20180517
  Receipt Date: 20180517
  Transmission Date: 20180711
  Serious: Yes (Other)
  Sender: FDA-Public Use
  Company Number: CN-GILEAD-2018-0338789

PATIENT
  Age: 64 Year
  Sex: Male

DRUGS (3)
  1. LAMIVUDINE. [Concomitant]
     Active Substance: LAMIVUDINE
  2. ENTECAVIR. [Concomitant]
     Active Substance: ENTECAVIR
     Indication: HEPATITIS B
     Dosage: 0.5 MG, QD
     Route: 048
  3. HEPSERA [Suspect]
     Active Substance: ADEFOVIR DIPIVOXIL
     Indication: HEPATITIS B
     Dosage: UNK
     Route: 065
     Dates: start: 20130303

REACTIONS (11)
  - Pathological fracture [Recovered/Resolved]
  - Osteoporosis [Unknown]
  - Glycosuria [Recovered/Resolved]
  - Chest pain [Unknown]
  - Hypocalcaemia [Recovered/Resolved]
  - Bone pain [Recovered/Resolved]
  - Proteinuria [Recovered/Resolved]
  - Fanconi syndrome acquired [Recovered/Resolved]
  - Renal injury [Recovered/Resolved]
  - Hypophosphataemia [Recovered/Resolved]
  - Muscular weakness [Recovered/Resolved]

NARRATIVE: CASE EVENT DATE: 201410
